FAERS Safety Report 10222654 (Version 1)
Quarter: 2014Q2

REPORT INFORMATION
  Report Type: Spontaneous
  Country: CN (occurrence: CN)
  Receive Date: 20140606
  Receipt Date: 20140606
  Transmission Date: 20141212
  Serious: Yes (Other)
  Sender: FDA-Public Use
  Company Number: CN-ASTRAZENECA-2014SE38323

PATIENT
  Sex: 0

DRUGS (1)
  1. SYMBICORT [Suspect]
     Indication: ASTHMA
     Dosage: 1 DF, TWO TIMES A DAY
     Route: 055
     Dates: start: 20140528

REACTIONS (2)
  - Blood pressure immeasurable [Recovering/Resolving]
  - Hyperhidrosis [Recovering/Resolving]
